FAERS Safety Report 5411901-X (Version None)
Quarter: 2007Q3

REPORT INFORMATION
  Report Type: 
  Country: None (occurrence: None)
  Receive Date: 20070810
  Receipt Date: 20070810
  Transmission Date: 20080115
  Serious: No
  Sender: FDA-Public Use
  Company Number: None

PATIENT
  Age: 37 Year
  Sex: Female
  Weight: 87.0906 kg

DRUGS (1)
  1. CHORIONIC GONADOTROPIN [Suspect]
     Indication: INFERTILITY
     Dosage: 5,000 UNITS ?? IM
     Route: 030
     Dates: start: 20070726

REACTIONS (1)
  - INCORRECT DOSE ADMINISTERED [None]
